FAERS Safety Report 6912974-5 (Version None)
Quarter: 2010Q3

REPORT INFORMATION
  Report Type: 
  Country: None (occurrence: None)
  Receive Date: 20100806
  Receipt Date: 20090513
  Transmission Date: 20110219
  Serious: Yes (Other)
  Sender: FDA-Public Use
  Company Number: US-PFIZER INC-2009156518

PATIENT
  Sex: Female
  Weight: 74.83 kg

DRUGS (11)
  1. VFEND [Suspect]
     Indication: ASPERGILLOSIS
     Dosage: 200 MG, 1X/DAY
     Dates: start: 20090105, end: 20090105
  2. DIFLUCAN [Concomitant]
     Dosage: 200 MG, WEEKLY
  3. ASTHALIN [Concomitant]
  4. ADVAIR DISKUS 100/50 [Concomitant]
  5. ACTONEL [Concomitant]
  6. ESTRACE [Concomitant]
  7. PREDNISONE [Concomitant]
  8. ASTELIN [Concomitant]
  9. COMBIVENT [Concomitant]
  10. ADVAIR DISKUS 100/50 [Concomitant]
  11. IMIPRAMINE [Concomitant]

REACTIONS (9)
  - ASTHENIA [None]
  - DIARRHOEA [None]
  - DRY MOUTH [None]
  - MUSCLE SPASMS [None]
  - NAUSEA [None]
  - NERVOUSNESS [None]
  - PRESYNCOPE [None]
  - VISUAL IMPAIRMENT [None]
  - VULVOVAGINAL PRURITUS [None]
